FAERS Safety Report 15459850 (Version 1)
Quarter: 2018Q4

REPORT INFORMATION
  Report Type: Spontaneous
  Country: US (occurrence: US)
  Receive Date: 20181001
  Receipt Date: 20181001
  Transmission Date: 20190204
  Serious: Yes (Other)
  Sender: FDA-Public Use
  Company Number: None

PATIENT
  Sex: Female

DRUGS (10)
  1. NITROGLYCERIN SUB 0.4MG [Concomitant]
  2. ATORVASTATIN TAB 40MG [Concomitant]
  3. LOSARTAN POT TAB 25MG [Concomitant]
  4. METFORMIN TAB 500MG [Concomitant]
  5. GLEEVEC [Suspect]
     Active Substance: IMATINIB MESYLATE
     Indication: PRODUCT USED FOR UNKNOWN INDICATION
     Route: 048
     Dates: start: 20170411
  6. ATENOLOL TAB 50MG [Concomitant]
  7. LEVOTHYROXIN TAB 88MCG [Concomitant]
  8. CLOPIDOGREL TAB 75MG [Concomitant]
  9. ASPIRIN LOW TAB 81MG EC [Concomitant]
  10. PLAVIX TAB 300MG [Concomitant]

REACTIONS (1)
  - Myocardial infarction [None]
